FAERS Safety Report 25380230 (Version 1)
Quarter: 2025Q2

REPORT INFORMATION
  Report Type: Report from Study
  Country: CN (occurrence: CN)
  Receive Date: 20250530
  Receipt Date: 20250530
  Transmission Date: 20250716
  Serious: Yes (Life-Threatening, Other)
  Sender: ALEXION PHARMACEUTICALS
  Company Number: CN-ASTRAZENECA-202505GLO025072CN

PATIENT
  Age: 19 Year
  Weight: 53 kg

DRUGS (2)
  1. ECULIZUMAB [Suspect]
     Active Substance: ECULIZUMAB
     Indication: Atypical haemolytic uraemic syndrome
     Dosage: 900 MILLIGRAM, QD
  2. Adenine phosphate [Concomitant]
     Indication: White blood cell count increased
     Dosage: 10 MILLIGRAM, TID

REACTIONS (2)
  - Agranulocytosis [Recovered/Resolved]
  - Hyperkalaemia [Recovered/Resolved]
